FAERS Safety Report 23409399 (Version 5)
Quarter: 2024Q1

REPORT INFORMATION
  Report Type: Spontaneous
  Country: FR (occurrence: FR)
  Receive Date: 20240117
  Receipt Date: 20240307
  Transmission Date: 20240410
  Serious: Yes (Death, Hospitalization, Other)
  Sender: FDA-Public Use
  Company Number: FR-BAXTER-2023BAX031915

PATIENT
  Age: 77 Year
  Sex: Male
  Weight: 105 kg

DRUGS (130)
  1. CYCLOPHOSPHAMIDE [Suspect]
     Active Substance: CYCLOPHOSPHAMIDE
     Dosage: 1500 MG CYCLE 1 DAY 1, EVERY 3 WEEKS
     Route: 042
     Dates: start: 20230816
  2. CYCLOPHOSPHAMIDE [Suspect]
     Active Substance: CYCLOPHOSPHAMIDE
     Indication: Diffuse large B-cell lymphoma
     Dosage: 750 MG/M2, Q3W
     Route: 042
  3. DOXORUBICIN [Suspect]
     Active Substance: DOXORUBICIN
     Dosage: 100 MG CYCLE 1 DAY 1, EVERY 3 WEEKS
     Route: 042
     Dates: start: 20230816
  4. DOXORUBICIN [Suspect]
     Active Substance: DOXORUBICIN
     Dosage: 200 MG
     Route: 065
     Dates: end: 20230810
  5. DOXORUBICIN [Suspect]
     Active Substance: DOXORUBICIN
     Indication: Diffuse large B-cell lymphoma
     Dosage: 50 MG/M2, Q3W
     Route: 042
  6. EPCORITAMAB [Suspect]
     Active Substance: EPCORITAMAB
     Dosage: 0.16 MG PRIMING DOSE C1, D1, TOTA
     Route: 058
     Dates: start: 20230816, end: 20230816
  7. EPCORITAMAB [Suspect]
     Active Substance: EPCORITAMAB
     Dosage: 0.8 MG INTERMEDIATE DOSE C1, D8, TOTA
     Route: 058
     Dates: start: 20230823, end: 20230823
  8. EPCORITAMAB [Suspect]
     Active Substance: EPCORITAMAB
     Indication: Diffuse large B-cell lymphoma
     Dosage: 600 MG, Q6H
     Route: 065
     Dates: start: 20230828, end: 20230829
  9. PREDNISONE [Suspect]
     Active Substance: PREDNISONE
     Dosage: 100 MG, QD, 100 MG DAILY C1-6, DAY 1-5, EVERY 1 DAYS
     Route: 048
     Dates: start: 20230816
  10. PREDNISONE [Suspect]
     Active Substance: PREDNISONE
     Indication: Diffuse large B-cell lymphoma
     Dosage: UNK
     Route: 065
  11. RITUXIMAB [Suspect]
     Active Substance: RITUXIMAB
     Dosage: 375 MG/M2, Q3W
     Route: 042
     Dates: start: 20230816
  12. RITUXIMAB [Suspect]
     Active Substance: RITUXIMAB
     Dosage: 750 MG CYCLE 1 DAY 1, EVERY 3 WEEKS
     Route: 042
     Dates: start: 20230816
  13. RITUXIMAB [Suspect]
     Active Substance: RITUXIMAB
     Indication: Diffuse large B-cell lymphoma
     Dosage: UNK
     Route: 065
  14. VINCRISTINE [Suspect]
     Active Substance: VINCRISTINE
     Dosage: 1.4 MG/M2, Q3W
     Route: 042
     Dates: start: 20230816
  15. VINCRISTINE [Suspect]
     Active Substance: VINCRISTINE
     Dosage: 2 MG CYCLE 1 DAY 1, EVERY 3 WEEKS
     Route: 042
     Dates: start: 20230816
  16. VINCRISTINE [Suspect]
     Active Substance: VINCRISTINE
     Indication: Diffuse large B-cell lymphoma
     Dosage: UNK
     Route: 065
  17. MORPHINE SULFATE [Concomitant]
     Active Substance: MORPHINE SULFATE
     Dosage: 20 MG, QD
     Route: 065
     Dates: start: 20230828, end: 20230829
  18. MORPHINE SULFATE [Concomitant]
     Active Substance: MORPHINE SULFATE
     Dosage: 200 MG
     Route: 065
     Dates: start: 20230810
  19. MORPHINE SULFATE [Concomitant]
     Active Substance: MORPHINE SULFATE
     Indication: Product used for unknown indication
     Dosage: 30 MG, BID
     Route: 065
     Dates: start: 20230823
  20. MORPHINE SULFATE [Concomitant]
     Active Substance: MORPHINE SULFATE
     Indication: Abdominal pain
     Dosage: 5 MG, AS NECESSARY
     Route: 065
     Dates: start: 20230823
  21. MORPHINE SULFATE [Concomitant]
     Active Substance: MORPHINE SULFATE
     Indication: Chest pain
     Dosage: 5 MG, PRN
     Route: 065
     Dates: start: 20230823
  22. ALLOPURINOL [Concomitant]
     Active Substance: ALLOPURINOL
     Indication: Hyperuricaemia
     Dosage: 100 MG, TID
     Route: 065
     Dates: start: 20230809, end: 20230828
  23. AMIKACIN [Concomitant]
     Active Substance: AMIKACIN
     Indication: Febrile bone marrow aplasia
     Dosage: 3000 MG, TOTAL ROUTE OF ADMIN (FREE TEXT): UNKNOWN ROUTE
     Route: 065
     Dates: start: 20230824, end: 20230824
  24. AMIKACIN [Concomitant]
     Active Substance: AMIKACIN
     Dosage: 3000 MG, TOTAL ROUTE OF ADMIN (FREE TEXT): UNKNOWN ROUTE
     Route: 065
     Dates: start: 20230824, end: 20230824
  25. AMIKACIN [Concomitant]
     Active Substance: AMIKACIN
     Dosage: 3000 MG, TOTAL ROUTE OF ADMIN (FREE TEXT): UNKNOWN ROUTE
     Route: 065
     Dates: start: 20230824, end: 20230824
  26. AMIKACIN [Concomitant]
     Active Substance: AMIKACIN
     Dosage: 3000 MG, TOTAL ROUTE OF ADMIN (FREE TEXT): UNKNOWN ROUTE
     Route: 065
     Dates: start: 20230824, end: 20230824
  27. AMIKACIN [Concomitant]
     Active Substance: AMIKACIN
     Dosage: 3000 MG, TOTAL ROUTE OF ADMIN (FREE TEXT): UNKNOWN ROUTE
     Route: 065
     Dates: start: 20230824, end: 20230824
  28. AMIKACIN [Concomitant]
     Active Substance: AMIKACIN
     Dosage: 3000 MG, TOTAL ROUTE OF ADMIN (FREE TEXT): UNKNOWN ROUTE
     Route: 065
     Dates: start: 20230824, end: 20230824
  29. AMIKACIN [Concomitant]
     Active Substance: AMIKACIN
     Dosage: 3000 MG, TOTAL ROUTE OF ADMIN (FREE TEXT): UNKNOWN ROUTE
     Route: 065
     Dates: start: 20230824, end: 20230824
  30. AMIKACIN [Concomitant]
     Active Substance: AMIKACIN
     Dosage: UNK
     Route: 065
     Dates: start: 20230824, end: 20230824
  31. AMIKACIN [Concomitant]
     Active Substance: AMIKACIN
     Dosage: UNK, 750 MG CYCLE 1 DAY 1, EVERY 3 WEEK
     Route: 042
     Dates: start: 20230816
  32. AMIODARONE [Concomitant]
     Active Substance: AMIODARONE
     Indication: Arrhythmia
     Dosage: 125 MG, QD
     Route: 065
     Dates: start: 20230908
  33. AMIODARONE HYDROCHLORIDE [Concomitant]
     Active Substance: AMIODARONE HYDROCHLORIDE
     Indication: Arrhythmia
     Dosage: 200 MG, BID
     Route: 065
     Dates: end: 20230810
  34. AMITRIPTYLINE [Concomitant]
     Active Substance: AMITRIPTYLINE
     Indication: Sleep disorder
     Dosage: 5 DROP, QD
     Route: 065
     Dates: start: 20230809, end: 20230814
  35. APIXABAN [Concomitant]
     Active Substance: APIXABAN
     Dosage: 2.5 MG, BID
     Route: 065
     Dates: start: 20230906, end: 20230911
  36. APIXABAN [Concomitant]
     Active Substance: APIXABAN
     Indication: Arrhythmia
     Dosage: 5 MG, BID,
     Route: 065
     Dates: end: 20230828
  37. ATORVASTATIN [Concomitant]
     Active Substance: ATORVASTATIN
     Indication: Dyslipidaemia
     Dosage: 10 MG, QD
     Route: 065
     Dates: start: 20230809, end: 20230902
  38. CANDESARTAN [Concomitant]
     Active Substance: CANDESARTAN
     Indication: Hypertension
     Dosage: 16 MG, QD ROUTE OF ADMIN (FREE TEXT): UNKNOWN ROUTE
     Route: 065
     Dates: end: 20230824
  39. CLOXACILLIN [Concomitant]
     Active Substance: CLOXACILLIN
     Indication: Febrile bone marrow aplasia
     Dosage: 2 G, Q4H
     Route: 065
     Dates: start: 20230825, end: 20230828
  40. CLOXACILLIN [Concomitant]
     Active Substance: CLOXACILLIN
     Dosage: 2 G, EVERY 4 HOURS ROUTE OF ADMIN (FREE TEXT): UNKNOWN ROUTE
     Route: 065
     Dates: start: 20230825, end: 20230828
  41. CLOXACILLIN [Concomitant]
     Active Substance: CLOXACILLIN
     Dosage: 2 G, EVERY 4 HOURS ROUTE OF ADMIN (FREE TEXT): UNKNOWN ROUTE
     Route: 065
     Dates: start: 20230825, end: 20230828
  42. CLOXACILLIN [Concomitant]
     Active Substance: CLOXACILLIN
     Dosage: 2 G, EVERY 4 HOURS ROUTE OF ADMIN (FREE TEXT): UNKNOWN ROUTE
     Route: 065
     Dates: start: 20230825, end: 20230828
  43. CLOXACILLIN [Concomitant]
     Active Substance: CLOXACILLIN
     Dosage: 2 G, EVERY 4 HOURS ROUTE OF ADMIN (FREE TEXT): UNKNOWN ROUTE
     Route: 065
     Dates: start: 20230825, end: 20230828
  44. CLOXACILLIN [Concomitant]
     Active Substance: CLOXACILLIN
     Dosage: 2 G, EVERY 4 HOURS ROUTE OF ADMIN (FREE TEXT): UNKNOWN ROUTE
     Route: 065
     Dates: start: 20230825, end: 20230828
  45. CLOXACILLIN [Concomitant]
     Active Substance: CLOXACILLIN
     Dosage: UNK
     Route: 065
     Dates: start: 20230825, end: 20230828
  46. CLOXACILLIN [Concomitant]
     Active Substance: CLOXACILLIN
     Dosage: UNK ROUTE OF ADMIN (FREE TEXT): UNKNOWN ROUTE
     Route: 065
     Dates: start: 20230825, end: 20230828
  47. DAPTOMYCIN [Concomitant]
     Active Substance: DAPTOMYCIN
     Indication: Febrile bone marrow aplasia
     Dosage: 1000 MG, QD
     Route: 065
     Dates: start: 20230824, end: 20230824
  48. DAPTOMYCIN [Concomitant]
     Active Substance: DAPTOMYCIN
     Dosage: 1000 MG, 4/DAYS ROUTE OF ADMIN (FREE TEXT): UNKNOWN ROUTE
     Route: 065
     Dates: start: 20230901
  49. DAPTOMYCIN [Concomitant]
     Active Substance: DAPTOMYCIN
     Dosage: 1000 MG, 4/DAYS ROUTE OF ADMIN (FREE TEXT): UNKNOWN ROUTE
     Route: 065
     Dates: start: 20230901
  50. DAPTOMYCIN [Concomitant]
     Active Substance: DAPTOMYCIN
     Dosage: 1000 MG, 4/DAYS ROUTE OF ADMIN (FREE TEXT): UNKNOWN ROUTE
     Route: 065
     Dates: start: 20230901
  51. DAPTOMYCIN [Concomitant]
     Active Substance: DAPTOMYCIN
     Dosage: 1000 MG, 4/DAYS ROUTE OF ADMIN (FREE TEXT): UNKNOWN ROUTE
     Route: 065
     Dates: start: 20230901
  52. DAPTOMYCIN [Concomitant]
     Active Substance: DAPTOMYCIN
     Indication: Staphylococcal infection
     Dosage: 1000 MG, EVERY 1 DAYS ROUTE OF ADMIN (FREE TEXT): UNKNOWN ROUTE
     Route: 065
     Dates: start: 20230824, end: 20230824
  53. DAPTOMYCIN [Concomitant]
     Active Substance: DAPTOMYCIN
     Indication: Staphylococcal infection
     Dosage: 1000 MG, EVERY 1 DAYS ROUTE OF ADMIN (FREE TEXT): UNKNOWN ROUTE
     Route: 065
     Dates: start: 20230824, end: 20230824
  54. DAPTOMYCIN [Concomitant]
     Active Substance: DAPTOMYCIN
     Dosage: 1000 MG, EVERY 1 DAYS ROUTE OF ADMIN (FREE TEXT): UNKNOWN ROUTE
     Route: 065
     Dates: start: 20230824, end: 20230824
  55. DAPTOMYCIN [Concomitant]
     Active Substance: DAPTOMYCIN
     Dosage: 1000 MG, EVERY 1 DAYS ROUTE OF ADMIN (FREE TEXT): UNKNOWN ROUTE
     Route: 065
     Dates: start: 20230824, end: 20230824
  56. DAPTOMYCIN [Concomitant]
     Active Substance: DAPTOMYCIN
     Dosage: 1000 MG, EVERY 1 DAYS ROUTE OF ADMIN (FREE TEXT): UNKNOWN ROUTE
     Route: 065
     Dates: start: 20230824, end: 20230824
  57. DAPTOMYCIN [Concomitant]
     Active Substance: DAPTOMYCIN
     Dosage: 1000 MG, EVERY 1 DAYS ROUTE OF ADMIN (FREE TEXT): UNKNOWN ROUTE
     Route: 065
     Dates: start: 20230824, end: 20230824
  58. DAPTOMYCIN [Concomitant]
     Active Substance: DAPTOMYCIN
     Dosage: 1000 MG, EVERY 1 DAYS ROUTE OF ADMIN (FREE TEXT): UNKNOWN ROUTE
     Route: 065
     Dates: start: 20230824, end: 20230824
  59. DAPTOMYCIN [Concomitant]
     Active Substance: DAPTOMYCIN
     Dosage: 1000 MG, EVERY 1 DAYS ROUTE OF ADMIN (FREE TEXT): UNKNOWN ROUTE
     Route: 065
     Dates: start: 20230824, end: 20230824
  60. DAPTOMYCIN [Concomitant]
     Active Substance: DAPTOMYCIN
     Dosage: 1000 MG, EVERY 1 DAYS ROUTE OF ADMIN (FREE TEXT): UNKNOWN ROUTE
     Route: 065
     Dates: start: 20230824, end: 20230824
  61. DAPTOMYCIN [Concomitant]
     Active Substance: DAPTOMYCIN
     Dosage: 1000 MG, EVERY 1 DAYS ROUTE OF ADMIN (FREE TEXT): UNKNOWN ROUTE
     Route: 065
     Dates: start: 20230824, end: 20230824
  62. DEXAMETHASONE [Concomitant]
     Active Substance: DEXAMETHASONE
     Indication: Chills
     Dosage: 40 MG, TOTAL ROUTE OF ADMIN (FREE TEXT): UNKNOWN ROUTE
     Route: 065
     Dates: start: 20230824, end: 20230824
  63. DEXAMETHASONE [Concomitant]
     Active Substance: DEXAMETHASONE
     Indication: Wheezing
  64. POTASSIUM CHLORIDE [Concomitant]
     Active Substance: POTASSIUM CHLORIDE
     Indication: Hypokalaemia
     Dosage: 600 MG
     Route: 065
     Dates: start: 20230906
  65. POTASSIUM CHLORIDE [Concomitant]
     Active Substance: POTASSIUM CHLORIDE
     Indication: Abdominal pain
     Dosage: 600 MG INTERMITTENT, 6/DAYS
     Route: 065
     Dates: start: 20230828, end: 20230829
  66. POTASSIUM CHLORIDE [Concomitant]
     Active Substance: POTASSIUM CHLORIDE
     Indication: Wheezing
     Dosage: 40 MG, TOTAL
     Route: 065
     Dates: start: 20230824, end: 20230824
  67. FILGRASTIM [Concomitant]
     Active Substance: FILGRASTIM
     Indication: Aplasia
     Dosage: UNK, QD, 24 MU/L
     Route: 065
     Dates: start: 20230821
  68. FILGRASTIM [Concomitant]
     Active Substance: FILGRASTIM
     Dosage: UNK
     Route: 065
     Dates: start: 20230821
  69. FUROSEMIDE [Concomitant]
     Active Substance: FUROSEMIDE
     Dosage: 20 MG, QD
     Route: 065
     Dates: start: 20230828, end: 20230829
  70. FUROSEMIDE [Concomitant]
     Active Substance: FUROSEMIDE
     Indication: Acute kidney injury
     Dosage: 40 MG, QD
     Route: 065
     Dates: start: 20230905, end: 20230906
  71. FUROSEMIDE [Concomitant]
     Active Substance: FUROSEMIDE
     Indication: Hypertension
     Dosage: 30 DROP, TID
     Route: 065
     Dates: start: 20230818, end: 20230830
  72. GABAPENTIN [Concomitant]
     Active Substance: GABAPENTIN
     Indication: Product used for unknown indication
     Dosage: 100 MG, TID
     Route: 065
     Dates: start: 20230823
  73. GABAPENTIN [Concomitant]
     Active Substance: GABAPENTIN
     Dosage: 100 MG
     Route: 065
     Dates: start: 20230823
  74. HYDROCHLOROTHIAZIDE [Concomitant]
     Active Substance: HYDROCHLOROTHIAZIDE
     Indication: Hypertension
     Dosage: 12.5 MG, QD
     Route: 065
     Dates: end: 20230924
  75. IRON [Concomitant]
     Active Substance: IRON
     Indication: Anaemia prophylaxis
     Dosage: 66 MG, BID
     Route: 065
     Dates: start: 20230809, end: 20230913
  76. IRON [Concomitant]
     Active Substance: IRON
     Dosage: 66 MG, BID
     Route: 065
     Dates: start: 20230809, end: 20230829
  77. KARDEGIC [Concomitant]
     Active Substance: ASPIRIN DL-LYSINE
     Indication: Peripheral artery angioplasty
     Dosage: 75 MG, BID
     Route: 065
     Dates: end: 20230810
  78. KARDEGIC [Concomitant]
     Active Substance: ASPIRIN DL-LYSINE
     Dosage: 75 MG
     Route: 065
     Dates: end: 20230810
  79. LIDOCAINE [Concomitant]
     Active Substance: LIDOCAINE
     Indication: Abdominal pain
     Dosage: 5 %, EVERY 1 DAYS ROUTE OF ADMIN (FREE TEXT): UNKNOWN ROUTE
     Route: 065
     Dates: start: 20230810, end: 20230813
  80. LIDOCAINE [Concomitant]
     Active Substance: LIDOCAINE
     Indication: Back pain
     Dosage: 5 %, EVERY 1 DAYS ROUTE OF ADMIN (FREE TEXT): UNKNOWN ROUTE
     Route: 065
     Dates: start: 20230817
  81. LIDOCAINE [Concomitant]
     Active Substance: LIDOCAINE
     Dosage: 5 %, QD,  INTERMITTENT, ROUTE OF ADMIN (FREE TEXT): UNKNOWN ROUTE
     Route: 065
     Dates: start: 20230810, end: 20230906
  82. POLYETHYLENE GLYCOLS [Concomitant]
     Active Substance: POLYETHYLENE GLYCOLS
     Indication: Sodium retention
     Dosage: 10 G, TID  3/DAYS
     Route: 065
     Dates: start: 20230814, end: 20230907
  83. POLYETHYLENE GLYCOLS [Concomitant]
     Active Substance: POLYETHYLENE GLYCOLS
     Indication: Constipation
  84. POLYETHYLENE GLYCOLS [Concomitant]
     Active Substance: POLYETHYLENE GLYCOLS
     Indication: Constipation prophylaxis
  85. METHYLPREDNISOLONE [Concomitant]
     Active Substance: METHYLPREDNISOLONE
     Indication: Product used for unknown indication
     Dosage: 100 MG, QD
     Route: 065
     Dates: start: 20230809, end: 20230813
  86. METHYLPREDNISOLONE [Concomitant]
     Active Substance: METHYLPREDNISOLONE
     Indication: Chemotherapy
     Dosage: 100 MG
     Route: 065
     Dates: start: 20230813
  87. METHYLPREDNISOLONE [Concomitant]
     Active Substance: METHYLPREDNISOLONE
     Dosage: 100 MG
     Route: 065
     Dates: end: 20230813
  88. NEBIVOLOL [Concomitant]
     Active Substance: NEBIVOLOL
     Indication: Hypertension
     Dosage: 2.5 MG, QD
     Route: 065
     Dates: end: 20230828
  89. NEFOPAM [Concomitant]
     Active Substance: NEFOPAM
     Dosage: 20 MG OCCASIONAL, AS NECESSARY
     Route: 065
     Dates: start: 20230812
  90. NEFOPAM [Concomitant]
     Active Substance: NEFOPAM
     Dosage: 20 MG, AS NECESSARY
     Route: 065
     Dates: start: 20230812
  91. NEFOPAM [Concomitant]
     Active Substance: NEFOPAM
     Indication: Chest pain
     Dosage: 20 MG, PRN
     Route: 065
     Dates: start: 20230812
  92. PANTOPRAZOLE [Concomitant]
     Active Substance: PANTOPRAZOLE
     Indication: Prophylaxis against gastrointestinal ulcer
     Dosage: 20 MG, QD, STOP DATE: 14-SEP-2023
     Route: 065
     Dates: start: 20230809
  93. PHOSPHORUS [Concomitant]
     Active Substance: PHOSPHORUS
     Indication: Prophylaxis
     Dosage: 30 DROP, TID
     Route: 065
     Dates: start: 20230818, end: 20230830
  94. PIPERACILLIN SODIUM [Concomitant]
     Active Substance: PIPERACILLIN SODIUM
     Indication: Febrile bone marrow aplasia
     Dosage: 4 G, Q6H
     Route: 065
     Dates: start: 20230824, end: 20230825
  95. PIPERACILLIN SODIUM [Concomitant]
     Active Substance: PIPERACILLIN SODIUM
     Dosage: 4 G, Q6H
     Route: 065
     Dates: start: 20230824, end: 20230825
  96. PIPERACILLIN SODIUM [Concomitant]
     Active Substance: PIPERACILLIN SODIUM
     Dosage: 4 G, Q6H
     Route: 065
     Dates: start: 20230824, end: 20230825
  97. PIPERACILLIN SODIUM [Concomitant]
     Active Substance: PIPERACILLIN SODIUM
     Dosage: 4 G, Q6H
     Route: 065
     Dates: start: 20230824, end: 20230825
  98. PIPERACILLIN SODIUM [Concomitant]
     Active Substance: PIPERACILLIN SODIUM
     Dosage: 4 G, Q6H
     Route: 065
     Dates: start: 20230824, end: 20230825
  99. PIPERACILLIN SODIUM [Concomitant]
     Active Substance: PIPERACILLIN SODIUM
     Dosage: 4 G, EVERY 6 HOURS ROUTE OF ADMIN (FREE TEXT): UNKNOWN ROUTE
     Route: 065
     Dates: start: 20230824, end: 20230825
  100. PIPERACILLIN SODIUM [Concomitant]
     Active Substance: PIPERACILLIN SODIUM
     Dosage: 4 G, EVERY 6 HOURS ROUTE OF ADMIN (FREE TEXT): UNKNOWN ROUTE
     Route: 065
     Dates: start: 20230824, end: 20230825
  101. PIPERACILLIN SODIUM [Concomitant]
     Active Substance: PIPERACILLIN SODIUM
     Dosage: 4 G, EVERY 6 HOURS ROUTE OF ADMIN (FREE TEXT): UNKNOWN ROUTE
     Route: 065
     Dates: start: 20230824, end: 20230825
  102. PIPERACILLIN SODIUM [Concomitant]
     Active Substance: PIPERACILLIN SODIUM
     Dosage: 4 G, EVERY 6 HOURS ROUTE OF ADMIN (FREE TEXT): UNKNOWN ROUTE
     Route: 065
     Dates: start: 20230824, end: 20230825
  103. PIPERACILLIN SODIUM [Concomitant]
     Active Substance: PIPERACILLIN SODIUM
     Dosage: 4 G, EVERY 6 HOURS ROUTE OF ADMIN (FREE TEXT): UNKNOWN ROUTE
     Route: 065
     Dates: start: 20230824, end: 20230825
  104. PIPERACILLIN SODIUM [Concomitant]
     Active Substance: PIPERACILLIN SODIUM
     Dosage: 4 G, EVERY 6 HOURS ROUTE OF ADMIN (FREE TEXT): UNKNOWN ROUTE
     Route: 065
     Dates: start: 20230824, end: 20230825
  105. PIPERACILLIN SODIUM [Concomitant]
     Active Substance: PIPERACILLIN SODIUM
     Dosage: UNK
     Route: 065
     Dates: start: 20230824, end: 20230825
  106. PIPERACILLIN SODIUM [Concomitant]
     Active Substance: PIPERACILLIN SODIUM
     Dosage: UNK ROUTE OF ADMIN (FREE TEXT): UNKNOWN ROUTE
     Route: 065
     Dates: start: 20230824, end: 20230825
  107. RILMENIDINE [Concomitant]
     Active Substance: RILMENIDINE
     Indication: Hypertension
     Dosage: 1 MG, QD
     Route: 065
     Dates: start: 20230828, end: 20230828
  108. RILMENIDINE ACTAVIS [Concomitant]
     Indication: Hypertension
     Dosage: 1 MG, QD, ROUTE OF ADMIN (FREE TEXT): UNKNOWN ROUTE
     Route: 065
     Dates: end: 20230828
  109. RILMENIDINE ACTAVIS [Concomitant]
     Dosage: 2.5 G, BID
     Route: 065
     Dates: start: 20230906, end: 20230911
  110. RILMENIDINE MERCK [Concomitant]
     Indication: Hypertension
     Dosage: 1 MG, EVERY 1 DAYS ROUTE OF ADMIN (FREE TEXT): UNKNOWN ROUTE
     Route: 065
  111. SKENAN [Concomitant]
     Active Substance: MORPHINE SULFATE
     Indication: Product used for unknown indication
     Dosage: 30 MG, BID
     Route: 065
     Dates: start: 20230823
  112. SKENAN [Concomitant]
     Active Substance: MORPHINE SULFATE
     Indication: Chest pain
     Dosage: 60 MG, QD
     Route: 065
  113. SKENAN [Concomitant]
     Active Substance: MORPHINE SULFATE
     Indication: Abdominal pain
  114. TAZOBACTAM [Concomitant]
     Active Substance: TAZOBACTAM
     Indication: Febrile bone marrow aplasia
     Dosage: 0.5 G, EVERY 6 HOURS ROUTE OF ADMIN (FREE TEXT): UNKNOWN ROUTE
     Route: 065
     Dates: start: 20230824, end: 20230825
  115. TAZOBACTAM [Concomitant]
     Active Substance: TAZOBACTAM
     Dosage: 0.5 G, EVERY 6 HOURS ROUTE OF ADMIN (FREE TEXT): UNKNOWN ROUTE
     Route: 065
     Dates: start: 20230824, end: 20230825
  116. TAZOBACTAM [Concomitant]
     Active Substance: TAZOBACTAM
     Dosage: 0.5 G, EVERY 6 HOURS ROUTE OF ADMIN (FREE TEXT): UNKNOWN ROUTE
     Route: 065
     Dates: start: 20230824, end: 20230825
  117. TAZOBACTAM [Concomitant]
     Active Substance: TAZOBACTAM
     Dosage: 0.5 G, EVERY 6 HOURS ROUTE OF ADMIN (FREE TEXT): UNKNOWN ROUTE
     Route: 065
     Dates: start: 20230824, end: 20230825
  118. TAZOBACTAM [Concomitant]
     Active Substance: TAZOBACTAM
     Dosage: 0.5 G, EVERY 6 HOURS ROUTE OF ADMIN (FREE TEXT): UNKNOWN ROUTE
     Route: 065
     Dates: start: 20230824, end: 20230825
  119. TAZOBACTAM [Concomitant]
     Active Substance: TAZOBACTAM
     Dosage: 0.5 G, EVERY 6 HOURS ROUTE OF ADMIN (FREE TEXT): UNKNOWN ROUTE
     Route: 065
     Dates: start: 20230824, end: 20230825
  120. TAZOBACTAM [Concomitant]
     Active Substance: TAZOBACTAM
     Dosage: 0.5 G, EVERY 6 HOURS ROUTE OF ADMIN (FREE TEXT): UNKNOWN ROUTE
     Route: 065
     Dates: start: 20230824, end: 20230825
  121. TAZOBACTAM [Concomitant]
     Active Substance: TAZOBACTAM
     Dosage: UNK ROUTE OF ADMIN (FREE TEXT): UNKNOWN ROUTE
     Route: 065
     Dates: start: 20230824, end: 20230825
  122. TAZOBACTAM [Concomitant]
     Active Substance: TAZOBACTAM
     Dosage: UNK ROUTE OF ADMIN (FREE TEXT): UNKNOWN ROUTE
     Route: 065
     Dates: start: 20230824, end: 20230825
  123. TERBUTALINE [Concomitant]
     Active Substance: TERBUTALINE
     Indication: Oxygen therapy
     Dosage: 5 MG, TOTAL ROUTE OF ADMIN (FREE TEXT): UNKNOWN ROUTE
     Route: 065
     Dates: start: 20230824, end: 20230824
  124. TRAMADOL [Concomitant]
     Active Substance: TRAMADOL\TRAMADOL HYDROCHLORIDE
     Indication: Chest pain
     Dosage: 100 MG, QD
     Route: 065
     Dates: start: 20230814, end: 20230823
  125. TRAMADOL [Concomitant]
     Active Substance: TRAMADOL\TRAMADOL HYDROCHLORIDE
     Dosage: 150 MG, QD
     Route: 065
     Dates: start: 20230809, end: 20230814
  126. VALACYCLOVIR HYDROCHLORIDE [Concomitant]
     Active Substance: VALACYCLOVIR HYDROCHLORIDE
     Indication: Antiviral prophylaxis
     Dosage: 12.5 MG, QD
     Route: 065
  127. VALACYCLOVIR HYDROCHLORIDE [Concomitant]
     Active Substance: VALACYCLOVIR HYDROCHLORIDE
     Dosage: 500 MG, QD
     Route: 065
     Dates: start: 20230831, end: 20230902
  128. ZOPICLONE [Concomitant]
     Active Substance: ZOPICLONE
     Dosage: 1.25 MG, QD
     Route: 065
     Dates: end: 20230924
  129. ZOPICLONE [Concomitant]
     Active Substance: ZOPICLONE
     Indication: Sleep disorder
     Dosage: 3.75 MG, QD
     Route: 065
     Dates: end: 20230829
  130. ZOPICLONE [Concomitant]
     Active Substance: ZOPICLONE
     Dosage: 3.75 MG, QD
     Route: 065
     Dates: end: 20230827

REACTIONS (7)
  - Enterobacter pneumonia [Fatal]
  - Cytokine release syndrome [Not Recovered/Not Resolved]
  - Acute kidney injury [Not Recovered/Not Resolved]
  - Enterobacter pneumonia [Not Recovered/Not Resolved]
  - Escherichia infection [Not Recovered/Not Resolved]
  - Staphylococcal infection [Recovered/Resolved]
  - Escherichia infection [Not Recovered/Not Resolved]

NARRATIVE: CASE EVENT DATE: 20230824
